FAERS Safety Report 8508726-5 (Version None)
Quarter: 2012Q3

REPORT INFORMATION
  Report Type: 
  Country: None (occurrence: None)
  Receive Date: 20120713
  Receipt Date: 20120706
  Transmission Date: 20120928
  Serious: Yes (Hospitalization)
  Sender: FDA-Public Use
  Company Number: US-UCBSA-061263

PATIENT
  Age: 48 Year
  Sex: Female
  Weight: 82 kg

DRUGS (6)
  1. AMBIEN [Suspect]
     Dosage: OVERDOSE
     Dates: start: 20110818
  2. LAMICTAL [Concomitant]
     Route: 048
  3. VIIBRYD [Suspect]
     Indication: MAJOR DEPRESSION
     Route: 048
     Dates: start: 20110812, end: 20110818
  4. HYDROCODONE BITARTRATE [Suspect]
     Dosage: OVERDOSE
     Dates: start: 20110818
  5. WELLBUTRIN [Concomitant]
     Route: 048
  6. LORTAB [Suspect]
     Dosage: OVERDOSE
     Dates: start: 20110818

REACTIONS (2)
  - SUICIDE ATTEMPT [None]
  - MULTIPLE DRUG OVERDOSE INTENTIONAL [None]
